FAERS Safety Report 24742477 (Version 1)
Quarter: 2024Q4

REPORT INFORMATION
  Report Type: Other
  Country: IN (occurrence: IN)
  Receive Date: 20241217
  Receipt Date: 20241217
  Transmission Date: 20250115
  Serious: Yes (Life-Threatening, Hospitalization)
  Sender: OWLPHARMA CONSULTING
  Company Number: IN-Owlpharma Consulting, Lda.-2167289

PATIENT
  Age: 31 Year
  Sex: Male
  Weight: 70 kg

DRUGS (1)
  1. DEXMEDETOMIDINE HYDROCHLORIDE [Suspect]
     Active Substance: DEXMEDETOMIDINE HYDROCHLORIDE
     Indication: Product used for unknown indication

REACTIONS (1)
  - Stress cardiomyopathy [Recovered/Resolved]
